FAERS Safety Report 15225658 (Version 1)
Quarter: 2018Q3

REPORT INFORMATION
  Report Type: Spontaneous
  Country: TR (occurrence: TR)
  Receive Date: 20180801
  Receipt Date: 20180801
  Transmission Date: 20181010
  Serious: Yes (Other)
  Sender: FDA-Public Use
  Company Number: TR-SUN PHARMACEUTICAL INDUSTRIES LTD-2018RR-180002

PATIENT
  Sex: Male
  Weight: 7.3 kg

DRUGS (4)
  1. PAMIDRONATE [Suspect]
     Active Substance: PAMIDRONATE DISODIUM
     Dosage: 6 MG/KG, ANNUALLY
     Route: 042
  2. ZOLEDRONIC ACID [Suspect]
     Active Substance: ZOLEDRONIC ACID
     Dosage: THREE CYCLES, EVERY 12 MONTHS
     Route: 042
  3. ZOLEDRONIC ACID [Suspect]
     Active Substance: ZOLEDRONIC ACID
     Indication: JUVENILE PAGET^S DISEASE
     Dosage: 0.05 MG/KG, DAILY
     Route: 042
  4. PAMIDRONATE [Suspect]
     Active Substance: PAMIDRONATE DISODIUM
     Indication: JUVENILE PAGET^S DISEASE
     Dosage: 1 MG/KG/EVERY 3 MONTHS
     Route: 042

REACTIONS (2)
  - Hypocalcaemia [Recovering/Resolving]
  - Drug resistance [Unknown]
